FAERS Safety Report 7595536-9 (Version None)
Quarter: 2011Q3

REPORT INFORMATION
  Report Type: 
  Country: None (occurrence: None)
  Receive Date: 20110707
  Receipt Date: 20110615
  Transmission Date: 20111222
  Serious: Yes (Hospitalization)
  Sender: FDA-Public Use
  Company Number: US-GLAXOSMITHKLINE-A0858975A

PATIENT
  Sex: Male
  Weight: 111.8 kg

DRUGS (11)
  1. ACCUPRIL [Concomitant]
  2. FAMOTIDINE [Concomitant]
  3. QUINAPRIL HCL [Concomitant]
  4. KLONOPIN [Concomitant]
  5. CLONAZEPAM [Concomitant]
  6. MIRTAZAPINE [Concomitant]
  7. STARLIX [Concomitant]
  8. AVANDAMET [Suspect]
     Indication: TYPE 2 DIABETES MELLITUS
     Route: 048
     Dates: start: 20040622, end: 20061220
  9. AVANDIA [Suspect]
     Indication: DIABETES MELLITUS
     Dosage: 4MG UNKNOWN
     Route: 048
  10. METHADONE HCL [Concomitant]
  11. NITROGLYCERIN [Concomitant]

REACTIONS (4)
  - CARDIOVASCULAR DISORDER [None]
  - TREATMENT NONCOMPLIANCE [None]
  - IN-STENT CORONARY ARTERY RESTENOSIS [None]
  - ANGINA UNSTABLE [None]
